FAERS Safety Report 10520829 (Version 4)
Quarter: 2015Q1

REPORT INFORMATION
  Report Type: Report from Study
  Country: FR (occurrence: FR)
  Receive Date: 20141015
  Receipt Date: 20150220
  Transmission Date: 20150720
  Serious: Yes (Hospitalization)
  Sender: FDA-Public Use
  Company Number: PHHO2014FR013694

PATIENT
  Age: 37 Year
  Sex: Female
  Weight: 75.6 kg

DRUGS (7)
  1. SOM230 [Suspect]
     Active Substance: PASIREOTIDE
     Indication: DUMPING SYNDROME
     Dosage: 20 MG
     Route: 030
     Dates: start: 20140919
  2. VITAMIN B12 [Concomitant]
     Active Substance: CYANOCOBALAMIN
     Indication: SUPPLEMENTATION THERAPY
     Dosage: 250 UG, EACH 10 DAYS
     Route: 065
     Dates: start: 20130924, end: 20141009
  3. SOM230 [Suspect]
     Active Substance: PASIREOTIDE
     Indication: DUMPING SYNDROME
     Dosage: 50 UG, TID
     Route: 058
     Dates: start: 20140627, end: 20140710
  4. VITAMIN B12 [Concomitant]
     Active Substance: CYANOCOBALAMIN
     Route: 065
     Dates: start: 20141010
  5. SOM230 [Suspect]
     Active Substance: PASIREOTIDE
     Dosage: 100 UG, TID
     Route: 058
     Dates: start: 20140711, end: 20140824
  6. SOM230 [Suspect]
     Active Substance: PASIREOTIDE
     Dosage: 150 UG, TID
     Route: 058
     Dates: start: 20140825
  7. ELEVIT VITAMINE B9 [Concomitant]
     Indication: SUPPLEMENTATION THERAPY
     Dosage: 1 DF, QD (ONE EVERY DAY)
     Route: 065
     Dates: start: 2010

REACTIONS (1)
  - Hypoglycaemia [Recovered/Resolved]

NARRATIVE: CASE EVENT DATE: 20140929
